FAERS Safety Report 4704638-3 (Version None)
Quarter: 2005Q2

REPORT INFORMATION
  Report Type: 
  Country: None (occurrence: None)
  Receive Date: 20050630
  Receipt Date: 20050624
  Transmission Date: 20051028
  Serious: Yes (Life-Threatening)
  Sender: FDA-Public Use
  Company Number: CH-MERCK-0506CHE00030

PATIENT
  Age: 59 Year
  Sex: Female

DRUGS (24)
  1. MEBEVERINE HYDROCHLORIDE [Concomitant]
     Route: 048
  2. ACEMETACIN [Concomitant]
     Route: 048
  3. MORPHINE SULFATE [Concomitant]
     Route: 048
  4. MORPHINE [Concomitant]
     Route: 065
  5. ZOCOR [Suspect]
     Route: 048
  6. NADROPARIN CALCIUM [Suspect]
     Route: 058
     Dates: start: 20050203, end: 20050220
  7. NADROPARIN CALCIUM [Suspect]
     Route: 058
     Dates: start: 20050221, end: 20050313
  8. ACENOCOUMAROL [Suspect]
     Route: 048
     Dates: end: 20050223
  9. ACENOCOUMAROL [Suspect]
     Route: 048
     Dates: start: 20050225
  10. ASPIRIN [Suspect]
     Route: 048
  11. ESCITALOPRAM OXALATE [Suspect]
     Route: 048
  12. OMEPRAZOLE [Suspect]
     Route: 048
  13. ORLISTAT [Suspect]
     Route: 048
  14. DIOSMIN [Concomitant]
     Route: 048
  15. ALPRAZOLAM [Concomitant]
     Route: 048
  16. TOLTERODINE TARTRATE [Concomitant]
     Route: 048
  17. CLONAZEPAM [Concomitant]
     Route: 048
  18. THIAMINE HYDROCHLORIDE [Concomitant]
     Route: 048
  19. ASCORBIC ACID AND VITAMIN B (UNSPECIFIED) [Concomitant]
     Route: 048
  20. BENSERAZIDE HYDROCHLORIDE AND LEVODOPA [Concomitant]
     Route: 048
  21. PYRIDOXINE [Concomitant]
     Route: 048
  22. FLUNITRAZEPAM [Concomitant]
     Route: 048
  23. PRASTERONE [Concomitant]
     Route: 048
  24. DIHYDROERGOTAMINE MESYLATE AND ETILEFRINE HYDROCHLORIDE [Concomitant]
     Route: 048

REACTIONS (4)
  - CARDIAC TAMPONADE [None]
  - CARDIOGENIC SHOCK [None]
  - INTESTINAL ISCHAEMIA [None]
  - MULTI-ORGAN FAILURE [None]
